FAERS Safety Report 9764922 (Version 1)
Quarter: 2013Q4

REPORT INFORMATION
  Report Type: Spontaneous
  Country: US (occurrence: US)
  Receive Date: 20131217
  Receipt Date: 20131217
  Transmission Date: 20140711
  Serious: No
  Sender: FDA-Public Use
  Company Number: US-BIOGENIDEC-2013BI111451

PATIENT
  Age: 42 Year
  Sex: Female

DRUGS (7)
  1. TECFIDERA [Suspect]
     Indication: MULTIPLE SCLEROSIS
  2. TECFIDERA [Suspect]
     Indication: MULTIPLE SCLEROSIS
     Route: 048
     Dates: start: 20131103
  3. SINGULAIR [Concomitant]
  4. DEXAMETHASONE [Concomitant]
  5. MACROBID [Concomitant]
  6. VIT D [Concomitant]
  7. ALBUTEROL SULFATE [Concomitant]

REACTIONS (4)
  - Fatigue [Unknown]
  - Headache [Unknown]
  - Flushing [Unknown]
  - Nausea [Unknown]
